FAERS Safety Report 4804530-X (Version None)
Quarter: 2005Q4

REPORT INFORMATION
  Report Type: 
  Country: None (occurrence: None)
  Receive Date: 20051017
  Receipt Date: 20051005
  Transmission Date: 20060501
  Serious: Yes (Other)
  Sender: FDA-Public Use
  Company Number: HQWYE924607OCT05

PATIENT
  Sex: Female

DRUGS (1)
  1. VENLAFAXINE HCL [Suspect]

REACTIONS (2)
  - ANTIDEPRESSANT DRUG CLEARANCE INCREASED [None]
  - DRUG EXPOSURE DURING PREGNANCY [None]
